FAERS Safety Report 6775837-4 (Version None)
Quarter: 2010Q2

REPORT INFORMATION
  Report Type: 
  Country: None (occurrence: None)
  Receive Date: 20100615
  Receipt Date: 20100608
  Transmission Date: 20101027
  Serious: Yes (Hospitalization, Other)
  Sender: FDA-Public Use
  Company Number: 2010SP025298

PATIENT
  Age: 37 Year
  Sex: Male
  Weight: 88.4514 kg

DRUGS (6)
  1. CLARITIN-D [Suspect]
     Indication: HYPERSENSITIVITY
     Dosage: 5 MG;QD;PO
     Dates: start: 20081101, end: 20100401
  2. CLARITIN-D [Suspect]
     Indication: RHINITIS
     Dosage: 5 MG;QD;PO
     Dates: start: 20081101, end: 20100401
  3. CLARITIN-D [Suspect]
     Indication: SINUSITIS
     Dosage: 5 MG;QD;PO
     Dates: start: 20081101, end: 20100401
  4. VITAMIN C [Concomitant]
  5. ASPIRIN [Concomitant]
  6. MULTI-VITAMIN [Concomitant]

REACTIONS (9)
  - ATRIAL FIBRILLATION [None]
  - DIZZINESS [None]
  - DYSPNOEA [None]
  - FATIGUE [None]
  - HYPOAESTHESIA [None]
  - MITRAL VALVE PROLAPSE [None]
  - PALPITATIONS [None]
  - SINUS TACHYCARDIA [None]
  - TRICUSPID VALVE INCOMPETENCE [None]
